FAERS Safety Report 6287877-2 (Version None)
Quarter: 2009Q3

REPORT INFORMATION
  Report Type: 
  Country: None (occurrence: None)
  Receive Date: 20090729
  Receipt Date: 20090722
  Transmission Date: 20100115
  Serious: Yes (Hospitalization)
  Sender: FDA-Public Use
  Company Number: US-ELI_LILLY_AND_COMPANY-US200906001865

PATIENT
  Sex: Female
  Weight: 73.923 kg

DRUGS (3)
  1. BYETTA [Suspect]
     Dosage: 10 UG, UNK
     Dates: start: 20060101, end: 20090603
  2. DIURETICS [Concomitant]
  3. ACE INHIBITOR NOS [Concomitant]

REACTIONS (4)
  - ALANINE AMINOTRANSFERASE INCREASED [None]
  - ASPARTATE AMINOTRANSFERASE INCREASED [None]
  - PANCREATITIS [None]
  - WEIGHT DECREASED [None]
